FAERS Safety Report 18627727 (Version 2)
Quarter: 2021Q1

REPORT INFORMATION
  Report Type: Report from Study
  Country: US (occurrence: US)
  Receive Date: 20201217
  Receipt Date: 20210208
  Transmission Date: 20210419
  Serious: Yes (Hospitalization)
  Sender: FDA-Public Use
  Company Number: US-TAKEDA-US201903973

PATIENT
  Age: 47 Year
  Sex: Female
  Weight: 66.21 kg

DRUGS (50)
  1. TEDUGLUTIDE [Suspect]
     Active Substance: TEDUGLUTIDE
     Indication: SHORT-BOWEL SYNDROME
     Dosage: UNK
     Route: 065
  2. TEDUGLUTIDE [Suspect]
     Active Substance: TEDUGLUTIDE
     Dosage: 0.03 MILLIGRAM/KILOGRAM (7 TED DOSES PER WEEK)
     Route: 065
     Dates: start: 201904, end: 20191025
  3. TEDUGLUTIDE [Suspect]
     Active Substance: TEDUGLUTIDE
     Dosage: 0.05 MILLIGRAM/KILOGRAM, QOD
     Route: 065
     Dates: start: 2018
  4. VANCOMYCIN [Concomitant]
     Active Substance: VANCOMYCIN
     Dosage: 1000 MILLIGRAM, BID
     Route: 042
     Dates: start: 20200304
  5. CHOLECALCIFEROL [Concomitant]
     Active Substance: CHOLECALCIFEROL
     Dosage: UNK
     Route: 065
  6. TEDUGLUTIDE [Suspect]
     Active Substance: TEDUGLUTIDE
     Dosage: 0.050 MILLIGRAM/KILOGRAM (7 TED DOSE PER WEEK)
     Route: 065
     Dates: start: 20181010, end: 20181107
  7. TEDUGLUTIDE [Suspect]
     Active Substance: TEDUGLUTIDE
     Dosage: 0.05 MILLIGRAM/KILOGRAM (7 TED DOSE PER WEEK)
     Route: 065
     Dates: start: 20181117, end: 20181219
  8. TEDUGLUTIDE [Suspect]
     Active Substance: TEDUGLUTIDE
     Dosage: 0.05 MILLIGRAM/KILOGRAM (4 TED DOSE PER WEEK)
     Route: 065
     Dates: start: 20181220, end: 201904
  9. PRILOSEC [Concomitant]
     Active Substance: OMEPRAZOLE MAGNESIUM
     Indication: GASTROOESOPHAGEAL REFLUX DISEASE
     Dosage: UNK
  10. CEFEPIME [Concomitant]
     Active Substance: CEFEPIME HYDROCHLORIDE
     Indication: BACTERAEMIA
     Dosage: 1 GRAM, TID
     Route: 042
     Dates: start: 20200303, end: 20200304
  11. PRILOSEC [Concomitant]
     Active Substance: OMEPRAZOLE MAGNESIUM
     Dosage: 10 MILLIGRAM
     Route: 048
  12. TEDUGLUTIDE [Suspect]
     Active Substance: TEDUGLUTIDE
     Dosage: 0.05 MILLIGRAM/KILOGRAM (4 TED DOSE PER WEEK)
     Route: 065
     Dates: start: 20181220, end: 201904
  13. TEDUGLUTIDE [Suspect]
     Active Substance: TEDUGLUTIDE
     Dosage: 0.03 MILLIGRAM/KILOGRAM (5 TED DOSES PER WEEK)
     Route: 065
     Dates: start: 20191025
  14. TEDUGLUTIDE [Suspect]
     Active Substance: TEDUGLUTIDE
     Dosage: 0.05 MILLIGRAM/KILOGRAM, QOD
     Route: 065
     Dates: start: 2018
  15. TEDUGLUTIDE [Suspect]
     Active Substance: TEDUGLUTIDE
     Dosage: 0.05 MILLIGRAM/KILOGRAM, QOD
     Route: 065
     Dates: start: 2018
  16. OXYCODONE [Concomitant]
     Active Substance: OXYCODONE
     Indication: PAIN
  17. ROXICODONE [Concomitant]
     Active Substance: OXYCODONE HYDROCHLORIDE
     Dosage: UNK UNK, TID
     Route: 048
  18. TEDUGLUTIDE [Suspect]
     Active Substance: TEDUGLUTIDE
     Indication: SHORT-BOWEL SYNDROME
     Dosage: UNK
     Route: 065
  19. TEDUGLUTIDE [Suspect]
     Active Substance: TEDUGLUTIDE
     Dosage: 0.03 MILLIGRAM/KILOGRAM (7 TED DOSES PER WEEK)
     Route: 065
     Dates: start: 201904, end: 20191025
  20. ZOFRAN [Concomitant]
     Active Substance: ONDANSETRON HYDROCHLORIDE
     Dosage: 4 MILLIGRAM
     Route: 048
  21. TEDUGLUTIDE [Suspect]
     Active Substance: TEDUGLUTIDE
     Dosage: 0.050 MILLIGRAM/KILOGRAM (7 TED DOSE PER WEEK)
     Route: 065
     Dates: start: 20181010, end: 20181107
  22. TEDUGLUTIDE [Suspect]
     Active Substance: TEDUGLUTIDE
     Dosage: 0.05 MILLIGRAM/KILOGRAM (7 TED DOSE PER WEEK)
     Route: 065
     Dates: start: 20181117, end: 20181219
  23. TEDUGLUTIDE [Suspect]
     Active Substance: TEDUGLUTIDE
     Dosage: 0.03 MILLIGRAM/KILOGRAM (7 TED DOSES PER WEEK)
     Route: 065
     Dates: start: 201904, end: 20191025
  24. OXYCODONE [Concomitant]
     Active Substance: OXYCODONE
     Indication: ABDOMINAL DISTENSION
     Dosage: UNK
  25. TYLENOL [Concomitant]
     Active Substance: ACETAMINOPHEN
     Indication: PAIN
     Dosage: UNK
  26. VANCOMYCIN [Concomitant]
     Active Substance: VANCOMYCIN
     Dosage: 1250 MILLIGRAM, Q12H
     Route: 042
     Dates: start: 20190911, end: 20191125
  27. CALCIUM CARBONATE/VITAMIN D3 [Concomitant]
     Active Substance: CALCIUM CARBONATE\CHOLECALCIFEROL
     Dosage: UNK
     Route: 048
  28. PROZAC [Concomitant]
     Active Substance: FLUOXETINE HYDROCHLORIDE
     Dosage: 10 MILLIGRAM
     Route: 048
  29. TEDUGLUTIDE [Suspect]
     Active Substance: TEDUGLUTIDE
     Indication: SHORT-BOWEL SYNDROME
     Dosage: UNK
     Route: 065
  30. TEDUGLUTIDE [Suspect]
     Active Substance: TEDUGLUTIDE
     Dosage: 0.050 MILLIGRAM/KILOGRAM (7 TED DOSE PER WEEK)
     Route: 065
     Dates: start: 20181010, end: 20181107
  31. TEDUGLUTIDE [Suspect]
     Active Substance: TEDUGLUTIDE
     Dosage: 0.05 MILLIGRAM/KILOGRAM (7 TED DOSE PER WEEK)
     Route: 065
     Dates: start: 20181117, end: 20181219
  32. TEDUGLUTIDE [Suspect]
     Active Substance: TEDUGLUTIDE
     Dosage: 0.05 MILLIGRAM/KILOGRAM (4 TED DOSE PER WEEK)
     Route: 065
     Dates: start: 20181220, end: 201904
  33. TEDUGLUTIDE [Suspect]
     Active Substance: TEDUGLUTIDE
     Dosage: 0.05 MILLIGRAM/KILOGRAM (4 TED DOSE PER WEEK)
     Route: 065
     Dates: start: 20181220, end: 201904
  34. TEDUGLUTIDE [Suspect]
     Active Substance: TEDUGLUTIDE
     Dosage: 0.03 MILLIGRAM/KILOGRAM (5 TED DOSES PER WEEK)
     Route: 065
     Dates: start: 20191025
  35. TEDUGLUTIDE [Suspect]
     Active Substance: TEDUGLUTIDE
     Dosage: 0.05 MILLIGRAM/KILOGRAM, QOD
     Route: 065
     Dates: start: 2018
  36. TYLENOL [Concomitant]
     Active Substance: ACETAMINOPHEN
     Indication: ABDOMINAL DISTENSION
  37. CYANOCOBALAMIN. [Concomitant]
     Active Substance: CYANOCOBALAMIN
     Dosage: 1000 MCG/ML, Q4WEEKS
     Route: 065
  38. PROTONIX [Concomitant]
     Active Substance: PANTOPRAZOLE SODIUM
     Dosage: 40 MILLIGRAM
     Route: 048
  39. TEDUGLUTIDE [Suspect]
     Active Substance: TEDUGLUTIDE
     Indication: SHORT-BOWEL SYNDROME
     Dosage: UNK
     Route: 065
  40. TEDUGLUTIDE [Suspect]
     Active Substance: TEDUGLUTIDE
     Dosage: 0.050 MILLIGRAM/KILOGRAM (7 TED DOSE PER WEEK)
     Route: 065
     Dates: start: 20181010, end: 20181107
  41. TEDUGLUTIDE [Suspect]
     Active Substance: TEDUGLUTIDE
     Dosage: 0.05 MILLIGRAM/KILOGRAM (7 TED DOSE PER WEEK)
     Route: 065
     Dates: start: 20181117, end: 20181219
  42. TEDUGLUTIDE [Suspect]
     Active Substance: TEDUGLUTIDE
     Dosage: 0.03 MILLIGRAM/KILOGRAM (7 TED DOSES PER WEEK)
     Route: 065
     Dates: start: 201904, end: 20191025
  43. TEDUGLUTIDE [Suspect]
     Active Substance: TEDUGLUTIDE
     Dosage: 0.03 MILLIGRAM/KILOGRAM (5 TED DOSES PER WEEK)
     Route: 065
     Dates: start: 20191025
  44. ZOFRAN [Concomitant]
     Active Substance: ONDANSETRON HYDROCHLORIDE
     Indication: NAUSEA
     Dosage: UNK
  45. IMITREX [Concomitant]
     Active Substance: SUMATRIPTAN SUCCINATE
     Dosage: 50 MILLIGRAM
     Route: 048
  46. TPN [AMINO ACIDS NOS;CARBOHYDRATES NOS;MINERALS NOS;VITAMINS NOS] [Concomitant]
     Active Substance: AMINO ACIDS\CARBOHYDRATES\MINERALS\VITAMINS
     Dosage: UNK
     Route: 065
  47. URSODIOL. [Concomitant]
     Active Substance: URSODIOL
     Dosage: UNK
     Route: 065
  48. TEDUGLUTIDE [Suspect]
     Active Substance: TEDUGLUTIDE
     Dosage: 0.03 MILLIGRAM/KILOGRAM (5 TED DOSES PER WEEK)
     Route: 065
     Dates: start: 20191025
  49. VANCOMYCIN [Concomitant]
     Active Substance: VANCOMYCIN
     Indication: BACTERAEMIA
     Dosage: 15 MILLIGRAM/KILOGRAM, BID
     Route: 042
     Dates: start: 20200303, end: 20200304
  50. SYNTHROID [Concomitant]
     Active Substance: LEVOTHYROXINE SODIUM
     Dosage: 50 MICROGRAM
     Route: 048

REACTIONS (2)
  - Intestinal obstruction [Recovered/Resolved]
  - Rectal abscess [Recovered/Resolved]

NARRATIVE: CASE EVENT DATE: 20181106
